FAERS Safety Report 20624887 (Version 1)
Quarter: 2022Q1

REPORT INFORMATION
  Report Type: Spontaneous
  Country: US (occurrence: US)
  Receive Date: 20220323
  Receipt Date: 20220323
  Transmission Date: 20220423
  Serious: No
  Sender: FDA-Public Use
  Company Number: US-STRIDES ARCOLAB LIMITED-2022SP000781

PATIENT
  Age: 5 Decade
  Sex: Female

DRUGS (42)
  1. PREDNISOLONE [Suspect]
     Active Substance: PREDNISOLONE
     Indication: Migraine without aura
     Dosage: UNK
     Route: 065
  2. PREDNISOLONE [Suspect]
     Active Substance: PREDNISOLONE
     Indication: Migraine
  3. GABAPENTIN [Suspect]
     Active Substance: GABAPENTIN
     Indication: Migraine without aura
     Dosage: UNK
     Route: 065
  4. GABAPENTIN [Suspect]
     Active Substance: GABAPENTIN
     Indication: Migraine
  5. GALCANEZUMAB [Concomitant]
     Active Substance: GALCANEZUMAB
     Indication: Migraine without aura
     Dosage: 120 MILLIGRAM, EVERY 28 DAYS FOR 12 MONTHS
     Route: 065
  6. GALCANEZUMAB [Concomitant]
     Active Substance: GALCANEZUMAB
     Indication: Migraine
  7. DIHYDROERGOTAMINE [Concomitant]
     Active Substance: DIHYDROERGOTAMINE
     Indication: Migraine without aura
     Dosage: UNK
     Route: 065
  8. DIHYDROERGOTAMINE [Concomitant]
     Active Substance: DIHYDROERGOTAMINE
     Indication: Migraine
  9. BUTALBITAL, ACETAMINOPHEN, AND CAFFEINE [Concomitant]
     Active Substance: ACETAMINOPHEN\BUTALBITAL\CAFFEINE
     Indication: Migraine without aura
     Dosage: UNK
     Route: 065
  10. BUTALBITAL, ACETAMINOPHEN, AND CAFFEINE [Concomitant]
     Active Substance: ACETAMINOPHEN\BUTALBITAL\CAFFEINE
     Indication: Migraine
  11. ALPRAZOLAM [Concomitant]
     Active Substance: ALPRAZOLAM
     Indication: Migraine without aura
     Dosage: UNK
     Route: 065
  12. ALPRAZOLAM [Concomitant]
     Active Substance: ALPRAZOLAM
     Indication: Migraine
  13. ACETAZOLAMIDE [Concomitant]
     Active Substance: ACETAZOLAMIDE
     Indication: Migraine without aura
     Dosage: UNK
     Route: 065
  14. ACETAZOLAMIDE [Concomitant]
     Active Substance: ACETAZOLAMIDE
     Indication: Migraine
  15. CYCLOBENZAPRINE [Concomitant]
     Active Substance: CYCLOBENZAPRINE
     Indication: Migraine without aura
     Dosage: UNK
     Route: 065
  16. CYCLOBENZAPRINE [Concomitant]
     Active Substance: CYCLOBENZAPRINE
     Indication: Migraine
  17. BOTULINUM TOXIN NOS [Concomitant]
     Active Substance: BOTULINUM TOXIN NOS
     Indication: Migraine without aura
     Dosage: UNK
     Route: 065
  18. BOTULINUM TOXIN NOS [Concomitant]
     Active Substance: BOTULINUM TOXIN NOS
     Indication: Migraine
  19. VALPROATE SODIUM [Concomitant]
     Active Substance: VALPROATE SODIUM
     Indication: Migraine without aura
     Dosage: UNK
     Route: 065
  20. VALPROATE SODIUM [Concomitant]
     Active Substance: VALPROATE SODIUM
     Indication: Migraine
  21. LAMOTRIGINE [Concomitant]
     Active Substance: LAMOTRIGINE
     Indication: Migraine without aura
     Dosage: UNK
     Route: 065
  22. LAMOTRIGINE [Concomitant]
     Active Substance: LAMOTRIGINE
     Indication: Migraine
  23. OXYCODONE [Concomitant]
     Active Substance: OXYCODONE
     Indication: Migraine without aura
     Dosage: UNK
     Route: 065
  24. OXYCODONE [Concomitant]
     Active Substance: OXYCODONE
     Indication: Migraine
  25. ONDANSETRON [Concomitant]
     Active Substance: ONDANSETRON
     Indication: Migraine without aura
     Dosage: UNK
     Route: 065
  26. ONDANSETRON [Concomitant]
     Active Substance: ONDANSETRON
     Indication: Migraine
  27. PROMETHAZINE [Concomitant]
     Active Substance: PROMETHAZINE HYDROCHLORIDE
     Indication: Migraine without aura
     Dosage: UNK
     Route: 065
  28. PROMETHAZINE [Concomitant]
     Active Substance: PROMETHAZINE HYDROCHLORIDE
     Indication: Migraine
  29. KETOROLAC [Concomitant]
     Active Substance: KETOROLAC TROMETHAMINE
     Indication: Migraine without aura
     Dosage: UNK
     Route: 065
  30. KETOROLAC [Concomitant]
     Active Substance: KETOROLAC TROMETHAMINE
     Indication: Migraine
  31. DIPHENHYDRAMINE [Concomitant]
     Active Substance: DIPHENHYDRAMINE
     Indication: Migraine without aura
     Dosage: UNK
     Route: 065
  32. DIPHENHYDRAMINE [Concomitant]
     Active Substance: DIPHENHYDRAMINE
     Indication: Migraine
  33. ACETAMINOPHEN\HYDROCODONE [Concomitant]
     Active Substance: ACETAMINOPHEN\HYDROCODONE
     Indication: Migraine without aura
     Dosage: UNK
     Route: 065
  34. ACETAMINOPHEN\HYDROCODONE [Concomitant]
     Active Substance: ACETAMINOPHEN\HYDROCODONE
     Indication: Migraine
  35. UBROGEPANT [Concomitant]
     Active Substance: UBROGEPANT
     Indication: Migraine without aura
     Dosage: UNK
     Route: 065
  36. UBROGEPANT [Concomitant]
     Active Substance: UBROGEPANT
     Indication: Migraine
  37. AMITRIPTYLINE [Concomitant]
     Active Substance: AMITRIPTYLINE
     Indication: Migraine without aura
     Dosage: UNK
     Route: 065
  38. AMITRIPTYLINE [Concomitant]
     Active Substance: AMITRIPTYLINE
     Indication: Migraine
  39. VILAZODONE [Concomitant]
     Active Substance: VILAZODONE
     Indication: Migraine without aura
     Dosage: UNK
     Route: 065
  40. VILAZODONE [Concomitant]
     Active Substance: VILAZODONE
     Indication: Migraine
  41. PREGABALIN [Concomitant]
     Active Substance: PREGABALIN
     Indication: Migraine without aura
     Dosage: UNK
     Route: 065
  42. PREGABALIN [Concomitant]
     Active Substance: PREGABALIN
     Indication: Migraine

REACTIONS (1)
  - Off label use [Unknown]
